FAERS Safety Report 12765634 (Version 1)
Quarter: 2016Q3

REPORT INFORMATION
  Report Type: Spontaneous
  Country: US (occurrence: US)
  Receive Date: 20160920
  Receipt Date: 20160920
  Transmission Date: 20161109
  Serious: No
  Sender: FDA-Public Use
  Company Number: None

PATIENT
  Age: 50 Year
  Sex: Female
  Weight: 58.97 kg

DRUGS (3)
  1. MONTELUKAST [Concomitant]
     Active Substance: MONTELUKAST SODIUM
  2. MONISTAT [Concomitant]
     Active Substance: MICONAZOLE NITRATE
  3. LEVOFLOXACIN. [Suspect]
     Active Substance: LEVOFLOXACIN
     Indication: URINARY TRACT INFECTION
     Route: 048
     Dates: start: 20160824, end: 20160828

REACTIONS (5)
  - Discomfort [None]
  - Fungal infection [None]
  - Muscle tightness [None]
  - Paraesthesia [None]
  - Hemiparesis [None]

NARRATIVE: CASE EVENT DATE: 20160826
